FAERS Safety Report 6815091-8 (Version None)
Quarter: 2010Q3

REPORT INFORMATION
  Report Type: 
  Country: None (occurrence: None)
  Receive Date: 20100702
  Receipt Date: 20100624
  Transmission Date: 20110219
  Serious: Yes (Congenital Anomaly)
  Sender: FDA-Public Use
  Company Number: US-WATSON-2010-08636

PATIENT

DRUGS (1)
  1. BUPROPION HYDROCHLORIDE XL (WATSON LABORATORIES) [Suspect]
     Indication: DEPRESSION
     Dosage: UNK
     Route: 064

REACTIONS (1)
  - CONGENITAL CARDIOVASCULAR ANOMALY [None]
